FAERS Safety Report 10802282 (Version 1)
Quarter: 2015Q1

REPORT INFORMATION
  Report Type: Spontaneous
  Country: US (occurrence: US)
  Receive Date: 20150217
  Receipt Date: 20150217
  Transmission Date: 20150721
  Serious: No
  Sender: FDA-Public Use
  Company Number: US-B.I. PHARMACEUTICALS,INC./RIDGEFIELD-2015-BI-05731BP

PATIENT
  Sex: Female
  Weight: 79.83 kg

DRUGS (5)
  1. CATAPRES-TTS [Suspect]
     Active Substance: CLONIDINE
     Dosage: FORMULATION: PATCHES STRENGTH: 7.5 MG (0.3 MG / DAY);
     Route: 061
     Dates: end: 2004
  2. CATAPRES-TTS [Suspect]
     Active Substance: CLONIDINE
     Indication: HYPERTENSION
     Dosage: FORMULATION: PATCHES STRENGTH: 2.5 MG (0.1 MG / DAY);
     Route: 061
  3. CATAPRES-TTS [Suspect]
     Active Substance: CLONIDINE
     Dosage: FORMULATION: PATCHES STRENGTH: 5 MG (0.2 MG / DAY);
     Route: 061
  4. CLONIDINE. [Suspect]
     Active Substance: CLONIDINE
     Indication: HYPERTENSION
     Dosage: FORMULATION: PATCH
     Route: 065
  5. CATAPRES-TTS [Suspect]
     Active Substance: CLONIDINE
     Route: 061
     Dates: start: 2004

REACTIONS (1)
  - Drug ineffective [Recovered/Resolved]

NARRATIVE: CASE EVENT DATE: 2014
